FAERS Safety Report 4306995-9 (Version None)
Quarter: 2004Q1

REPORT INFORMATION
  Report Type: 
  Country: None (occurrence: None)
  Receive Date: 20040225
  Receipt Date: 20040217
  Transmission Date: 20041129
  Serious: Yes (Other)
  Sender: FDA-Public Use
  Company Number: AU-JNJFOC-20030905316

PATIENT
  Age: 16 Year
  Sex: Female

DRUGS (4)
  1. TOPAMAX [Suspect]
     Indication: COMPLEX PARTIAL SEIZURES
     Dosage: 25 MG, 2 IN 1 DAY; ORAL
     Route: 048
     Dates: start: 20030830
  2. TEGRETOL [Concomitant]
  3. NAPROXEN (UNKNOWN) [Concomitant]
  4. MERSYNDOL (UNKNOWN) [Concomitant]

REACTIONS (10)
  - ALANINE AMINOTRANSFERASE INCREASED [None]
  - BLOOD ALKALINE PHOSPHATASE INCREASED [None]
  - DIZZINESS [None]
  - DYSGRAPHIA [None]
  - GAMMA-GLUTAMYLTRANSFERASE INCREASED [None]
  - HEADACHE [None]
  - JAUNDICE [None]
  - MEMORY IMPAIRMENT [None]
  - SHUNT OCCLUSION [None]
  - VENTRICULO-PERITONEAL SHUNT [None]
